FAERS Safety Report 8468143-3 (Version None)
Quarter: 2012Q2

REPORT INFORMATION
  Report Type: 
  Country: None (occurrence: None)
  Receive Date: 20120626
  Receipt Date: 20120618
  Transmission Date: 20120825
  Serious: Yes (Other)
  Sender: FDA-Public Use
  Company Number: IL-ABBOTT-12P-082-0911416-00

PATIENT
  Sex: Female

DRUGS (6)
  1. ART 50 [Concomitant]
     Indication: PROSTATIC SPECIFIC ANTIGEN
  2. AMLOW [Concomitant]
     Indication: HYPERTENSION
  3. PARNIC [Concomitant]
     Indication: PRODUCT USED FOR UNKNOWN INDICATION
  4. HUMIRA [Suspect]
     Indication: PSORIATIC ARTHROPATHY
     Route: 058
     Dates: start: 20120209
  5. LOSARTAN POTASSIUM [Concomitant]
     Indication: PRODUCT USED FOR UNKNOWN INDICATION
  6. LITORVA [Concomitant]
     Indication: HYPERLIPIDAEMIA

REACTIONS (10)
  - DIZZINESS [None]
  - EMOTIONAL DISTRESS [None]
  - OEDEMA [None]
  - SOMNOLENCE [None]
  - DRUG DOSE OMISSION [None]
  - CHEST DISCOMFORT [None]
  - HEADACHE [None]
  - PARAESTHESIA [None]
  - CHEST PAIN [None]
  - ASTHENIA [None]
